FAERS Safety Report 25509828 (Version 1)
Quarter: 2025Q3

REPORT INFORMATION
  Report Type: Spontaneous
  Country: JP (occurrence: JP)
  Receive Date: 20250703
  Receipt Date: 20250703
  Transmission Date: 20251021
  Serious: Yes (Hospitalization)
  Sender: TEVA
  Company Number: JP-TEVA-VS-3346639

PATIENT
  Sex: Female
  Weight: 72 kg

DRUGS (7)
  1. MODAFINIL [Suspect]
     Active Substance: MODAFINIL
     Indication: Somnolence
     Route: 048
     Dates: start: 2011, end: 20200315
  2. MODAFINIL [Suspect]
     Active Substance: MODAFINIL
     Indication: Somnolence
     Route: 048
     Dates: start: 20200316
  3. PATANOL [Concomitant]
     Active Substance: OLOPATADINE HYDROCHLORIDE
     Indication: Product used for unknown indication
     Dates: start: 20170125
  4. HERBALS [Concomitant]
     Active Substance: HERBALS
     Indication: Product used for unknown indication
     Route: 048
  5. ERIZAS [Concomitant]
     Indication: Product used for unknown indication
     Route: 045
     Dates: start: 20160725
  6. BILASTINE [Concomitant]
     Active Substance: BILASTINE
     Indication: Product used for unknown indication
     Route: 048
     Dates: start: 20200316
  7. HERBALS [Concomitant]
     Active Substance: HERBALS
     Indication: Product used for unknown indication
     Route: 048
     Dates: start: 20151016

REACTIONS (3)
  - Uterine cancer [Recovering/Resolving]
  - Off label use [Recovered/Resolved]
  - Treatment noncompliance [Unknown]

NARRATIVE: CASE EVENT DATE: 20110101
